FAERS Safety Report 4501343-3 (Version None)
Quarter: 2004Q4

REPORT INFORMATION
  Report Type: 
  Country: None (occurrence: None)
  Receive Date: 20041109
  Receipt Date: 20041021
  Transmission Date: 20050328
  Serious: Yes (Hospitalization)
  Sender: FDA-Public Use
  Company Number: USA041081943

PATIENT
  Age: 63 Year
  Sex: Female
  Weight: 78 kg

DRUGS (4)
  1. HUMALOG [Suspect]
     Dosage: 3 U AS NEEDED
  2. LANTUS [Concomitant]
  3. GLUCOPHAGE [Concomitant]
  4. AMARYL [Concomitant]

REACTIONS (8)
  - DIABETES MELLITUS INADEQUATE CONTROL [None]
  - EMOTIONAL DISTRESS [None]
  - INTERVERTEBRAL DISC PROTRUSION [None]
  - MALAISE [None]
  - PAIN [None]
  - PHARMACEUTICAL PRODUCT COMPLAINT [None]
  - RESPIRATORY DISORDER [None]
  - RHEUMATOID ARTHRITIS [None]
